FAERS Safety Report 9311926 (Version 1)
Quarter: 2013Q2

REPORT INFORMATION
  Report Type: Spontaneous
  Country: GB (occurrence: GB)
  Receive Date: 20130528
  Receipt Date: 20130528
  Transmission Date: 20140414
  Serious: Yes (Other)
  Sender: FDA-Public Use
  Company Number: GB-JNJFOC-20130510543

PATIENT
  Age: 53 Year
  Sex: Male
  Weight: 36.6 kg

DRUGS (4)
  1. PARACETAMOL [Suspect]
     Route: 048
  2. PARACETAMOL [Suspect]
     Indication: PYREXIA
     Dosage: 8 DOSES OF PARACETAMOL 1 G ORALLY AT INTERVALS OF 4 HOURS OVER 48 HOUR PERIOD (109MG/KG/24HOURS)
     Route: 048
  3. AMOXICILLIN [Suspect]
     Indication: PYREXIA
     Route: 065
  4. ALCOHOL [Suspect]
     Indication: PRODUCT USED FOR UNKNOWN INDICATION
     Route: 065

REACTIONS (3)
  - Drug-induced liver injury [Recovered/Resolved]
  - Alanine aminotransferase increased [None]
  - Prothrombin time prolonged [None]
